FAERS Safety Report 7933890-6 (Version None)
Quarter: 2011Q4

REPORT INFORMATION
  Report Type: 
  Country: None (occurrence: None)
  Receive Date: 20111122
  Receipt Date: 20111107
  Transmission Date: 20120403
  Serious: Yes (Hospitalization)
  Sender: FDA-Public Use
  Company Number: US-ROCHE-322018

PATIENT
  Age: 52 Year
  Sex: Female
  Weight: 46.4 kg

DRUGS (5)
  1. PACLITAXEL [Suspect]
     Indication: BREAST CANCER
     Route: 042
     Dates: start: 20020307, end: 20020523
  2. DOXORUBICIN HCL [Suspect]
     Indication: BREAST CANCER
     Route: 042
     Dates: start: 20011213, end: 20020214
  3. CYCLOPHOSPHAMIDE [Suspect]
     Indication: BREAST CANCER
     Route: 042
     Dates: start: 20011213, end: 20020214
  4. HERCEPTIN [Suspect]
     Indication: BREAST CANCER
     Route: 042
     Dates: start: 20020314, end: 20020801
  5. HERCEPTIN [Suspect]
     Route: 042
     Dates: start: 20020307, end: 20020307

REACTIONS (3)
  - MYOCARDIAL ISCHAEMIA [None]
  - TROPONIN I INCREASED [None]
  - LEFT VENTRICULAR DYSFUNCTION [None]
